FAERS Safety Report 13807371 (Version 1)
Quarter: 2017Q3

REPORT INFORMATION
  Report Type: Spontaneous
  Country: JP (occurrence: JP)
  Receive Date: 20170728
  Receipt Date: 20170728
  Transmission Date: 20171127
  Serious: Yes (Hospitalization)
  Sender: FDA-Public Use
  Company Number: JP-TEVA-790291ROM

PATIENT
  Age: 69 Year
  Sex: Female

DRUGS (6)
  1. ATROPINE. [Suspect]
     Active Substance: ATROPINE
     Dosage: 0.5MG
     Route: 040
  2. FENTANYL. [Suspect]
     Active Substance: FENTANYL
     Indication: MAINTENANCE OF ANAESTHESIA
     Dosage: 1.0-2.0%
     Route: 065
  3. THIAMYLAL SODIUM [Suspect]
     Active Substance: THIAMYLAL SODIUM
     Indication: INDUCTION OF ANAESTHESIA
     Dosage: 150MG
     Route: 042
  4. FENTANYL. [Suspect]
     Active Substance: FENTANYL
     Indication: INDUCTION OF ANAESTHESIA
     Dosage: 25MICROG
     Route: 065
  5. ROCURONIUM BROMIDE. [Concomitant]
     Active Substance: ROCURONIUM BROMIDE
     Indication: ENDOTRACHEAL INTUBATION
     Dosage: 50MG
     Route: 065
  6. OXYGEN. [Concomitant]
     Active Substance: OXYGEN
     Dosage: 100%
     Route: 065

REACTIONS (4)
  - Paradoxical drug reaction [Recovered/Resolved]
  - Atrioventricular block complete [Recovered/Resolved]
  - Product use in unapproved indication [Unknown]
  - Off label use [Unknown]
